FAERS Safety Report 26180044 (Version 1)
Quarter: 2025Q4

REPORT INFORMATION
  Report Type: Report from Study
  Country: US (occurrence: US)
  Receive Date: 20251219
  Receipt Date: 20251219
  Transmission Date: 20260117
  Serious: No
  Sender: MALLINCKRODT
  Company Number: US-MALLINCKRODT-MNK202507850

PATIENT
  Age: 47 Year
  Sex: Female
  Weight: 211 kg

DRUGS (14)
  1. CORTICOTROPIN [Suspect]
     Active Substance: CORTICOTROPIN
     Indication: Haematuria
     Dosage: 80 UNITS
     Route: 058
     Dates: start: 20251121
  2. TESTOSTERONE [Suspect]
     Active Substance: TESTOSTERONE
     Dosage: UNKNOWN
  3. TIZANIDINE [Concomitant]
     Active Substance: TIZANIDINE
  4. SUBOXONE [Concomitant]
     Active Substance: BUPRENORPHINE HYDROCHLORIDE\NALOXONE HYDROCHLORIDE
     Dosage: UNKNOWN (8-2MG)
     Route: 060
  5. MIRTAZAPINE [Concomitant]
     Active Substance: MIRTAZAPINE
     Route: 048
  6. LEVOTHYROXINE SODIUM [Concomitant]
     Active Substance: LEVOTHYROXINE SODIUM
     Route: 048
  7. ICOSAPENT ETHYL [Concomitant]
     Active Substance: ICOSAPENT ETHYL
     Dosage: WITH MEALS
     Route: 048
  8. ESCITALOPRAM OXALATE [Concomitant]
     Active Substance: ESCITALOPRAM OXALATE
     Route: 048
  9. DEXMETHYLPHENIDATE HYDROCHLORIDE [Concomitant]
     Active Substance: DEXMETHYLPHENIDATE HYDROCHLORIDE
     Dosage: IN THE MORNING
     Route: 048
  10. CLONAZEPAM [Concomitant]
     Active Substance: CLONAZEPAM
     Route: 048
  11. LOSARTAN POTASSIUM [Concomitant]
     Active Substance: LOSARTAN POTASSIUM
     Route: 048
  12. PANTOPRAZOLE SODIUM [Concomitant]
     Active Substance: PANTOPRAZOLE SODIUM
     Dosage: 1.5 TO 1 HOUR BEFORE MORNING MEAL
     Route: 048
  13. PROMETHAZINE HYDROCHLORIDE [Concomitant]
     Active Substance: PROMETHAZINE HYDROCHLORIDE
  14. (-)-HIGENAMINE HYDROCHLORIDE [Concomitant]
     Dosage: BEDTIME
     Route: 048

REACTIONS (2)
  - Rash [Unknown]
  - Product dose omission issue [Unknown]
